FAERS Safety Report 6763498-X (Version None)
Quarter: 2010Q2

REPORT INFORMATION
  Report Type: 
  Country: None (occurrence: None)
  Receive Date: 20100610
  Receipt Date: 20100601
  Transmission Date: 20101027
  Serious: Yes (Other)
  Sender: FDA-Public Use
  Company Number: US-WYE-H15487010

PATIENT
  Age: 50 Year
  Sex: Male

DRUGS (1)
  1. TORISEL [Suspect]
     Indication: RENAL CELL CARCINOMA
     Route: 042

REACTIONS (4)
  - COUGH [None]
  - DYSPNOEA [None]
  - PYREXIA [None]
  - RESPIRATORY TRACT INFLAMMATION [None]
